FAERS Safety Report 12383060 (Version 3)
Quarter: 2016Q2

REPORT INFORMATION
  Report Type: Report from Study
  Country: TR (occurrence: TR)
  Receive Date: 20160518
  Receipt Date: 20160609
  Transmission Date: 20160815
  Serious: Yes (Other)
  Sender: FDA-Public Use
  Company Number: PHHY2016TR066965

PATIENT
  Age: 37 Year
  Sex: Female
  Weight: 55 kg

DRUGS (2)
  1. GILENYA [Suspect]
     Active Substance: FINGOLIMOD HYDROCHLORIDE
     Indication: MULTIPLE SCLEROSIS
     Dosage: 0.5 MG, QD
     Route: 048
     Dates: start: 20160223, end: 20160429
  2. DESMONT [Concomitant]
     Indication: PRODUCT USED FOR UNKNOWN INDICATION
     Dosage: 1 DF, QD
     Route: 048
     Dates: end: 20160511

REACTIONS (9)
  - Hepatotoxicity [Not Recovered/Not Resolved]
  - Neutrophil count increased [Unknown]
  - Platelet count decreased [Unknown]
  - Lymphocyte count decreased [Unknown]
  - Prothrombin time prolonged [Unknown]
  - Blood creatine phosphokinase increased [Unknown]
  - International normalised ratio increased [Unknown]
  - Low density lipoprotein increased [Unknown]
  - Hepatic enzyme increased [Recovered/Resolved]

NARRATIVE: CASE EVENT DATE: 20160422
